FAERS Safety Report 6616381-4 (Version None)
Quarter: 2010Q1

REPORT INFORMATION
  Report Type: 
  Country: None (occurrence: None)
  Receive Date: 20100305
  Receipt Date: 20100226
  Transmission Date: 20100710
  Serious: Yes (Other)
  Sender: FDA-Public Use
  Company Number: JP-JNJFOC-20100300115

PATIENT

DRUGS (2)
  1. RISPERDAL [Suspect]
     Indication: DRUG USE FOR UNKNOWN INDICATION
     Route: 048
  2. FLUVOXAMINE MALEATE [Concomitant]
     Route: 048

REACTIONS (2)
  - ENURESIS [None]
  - URINE OUTPUT INCREASED [None]
